FAERS Safety Report 9504497 (Version 2)
Quarter: 2013Q3

REPORT INFORMATION
  Report Type: Spontaneous
  Country: DE (occurrence: DE)
  Receive Date: 20130906
  Receipt Date: 20130906
  Transmission Date: 20140515
  Serious: Yes (Hospitalization)
  Sender: FDA-Public Use
  Company Number: DE-ROCHE-1239955

PATIENT
  Age: 55 Year
  Sex: Male
  Weight: 80.3 kg

DRUGS (5)
  1. VALCYTE [Suspect]
     Indication: PROPHYLAXIS
     Route: 048
  2. GANCICLOVIR [Suspect]
     Indication: CYTOMEGALOVIRUS INFECTION
     Route: 042
  3. CELLCEPT [Concomitant]
     Indication: PROPHYLAXIS AGAINST TRANSPLANT REJECTION
     Route: 065
  4. TACROLIMUS [Concomitant]
     Indication: PROPHYLAXIS AGAINST TRANSPLANT REJECTION
     Route: 065
  5. FOSCAVIR [Concomitant]

REACTIONS (3)
  - Drug resistance [Unknown]
  - Cytomegalovirus infection [Recovered/Resolved]
  - Transplant dysfunction [Recovering/Resolving]
